FAERS Safety Report 4707563-7 (Version None)
Quarter: 2005Q3

REPORT INFORMATION
  Report Type: 
  Country: None (occurrence: None)
  Receive Date: 20050706
  Receipt Date: 20050523
  Transmission Date: 20060218
  Serious: Yes (Other)
  Sender: FDA-Public Use
  Company Number: PHBS2005BE07438

PATIENT
  Age: 60 Year
  Sex: Male

DRUGS (9)
  1. ZOMETA [Suspect]
     Indication: METASTASES TO BONE
     Dosage: 4 MG, QMO
     Route: 042
     Dates: start: 20030101, end: 20050301
  2. HYDROCORTICOSTEROIDS [Concomitant]
     Dosage: 35 MG/D
     Route: 065
  3. FLUDROCORTICOSTEROIDS [Concomitant]
     Dosage: 1250 MG/D
     Route: 065
  4. LYSODREN [Concomitant]
     Route: 065
     Dates: start: 20010101
  5. MORPHINE [Concomitant]
     Indication: PAIN
     Route: 037
     Dates: start: 20020101
  6. MARCAINE [Concomitant]
     Indication: PAIN
     Route: 037
     Dates: start: 20020101
  7. AREDIA [Suspect]
     Indication: METASTASES TO BONE
     Dosage: UNK, UNK
     Route: 042
     Dates: start: 20000401
  8. RADIOTHERAPY [Concomitant]
     Dosage: IN RIB 7 (30 GY)
     Route: 065
     Dates: start: 20000501
  9. RADIOTHERAPY [Concomitant]
     Dosage: OF SCRUM
     Route: 065
     Dates: start: 20050101

REACTIONS (11)
  - ADRENOCORTICAL INSUFFICIENCY ACUTE [None]
  - ASEPTIC NECROSIS BONE [None]
  - BONE DENSITY INCREASED [None]
  - MYALGIA [None]
  - NEUROPATHIC PAIN [None]
  - OSTEONECROSIS [None]
  - PATHOLOGICAL FRACTURE [None]
  - SLEEP APNOEA SYNDROME [None]
  - SURGERY [None]
  - TOOTH EXTRACTION [None]
  - TRAUMATIC FRACTURE [None]
